FAERS Safety Report 13908326 (Version 1)
Quarter: 2017Q3

REPORT INFORMATION
  Report Type: Report from Study
  Country: US (occurrence: US)
  Receive Date: 20170826
  Receipt Date: 20170826
  Transmission Date: 20171127
  Serious: No
  Sender: FDA-Public Use
  Company Number: US-AMGEN-USASL2017127617

PATIENT
  Age: 49 Year
  Sex: Male

DRUGS (1)
  1. ENBREL [Suspect]
     Active Substance: ETANERCEPT
     Indication: PSORIATIC ARTHROPATHY
     Dosage: UNK
     Route: 065
     Dates: start: 20170809

REACTIONS (3)
  - Swelling face [Recovering/Resolving]
  - Feeling abnormal [Recovering/Resolving]
  - Butterfly rash [Recovering/Resolving]

NARRATIVE: CASE EVENT DATE: 20170817
